FAERS Safety Report 25745516 (Version 1)
Quarter: 2025Q3

REPORT INFORMATION
  Report Type: Report from Study
  Country: US (occurrence: US)
  Receive Date: 20250901
  Receipt Date: 20250901
  Transmission Date: 20251021
  Serious: No
  Sender: DECIPHERA PHARMACEUTICALS
  Company Number: US-DECIPHERA PHARMACEUTICALS LLC-2025US000978

PATIENT
  Age: 71 Year
  Sex: Male
  Weight: 104.98 kg

DRUGS (1)
  1. QINLOCK [Suspect]
     Active Substance: RIPRETINIB
     Indication: Gastrointestinal stromal tumour
     Dosage: 150 MILLIGRAM, QD
     Dates: start: 20250712

REACTIONS (3)
  - Blood pressure increased [Unknown]
  - Muscle spasms [Unknown]
  - Alopecia [Unknown]

NARRATIVE: CASE EVENT DATE: 20250101
